FAERS Safety Report 15198125 (Version 2)
Quarter: 2019Q2

REPORT INFORMATION
  Report Type: Report from Study
  Country: US (occurrence: US)
  Receive Date: 20180725
  Receipt Date: 20190621
  Transmission Date: 20190711
  Serious: Yes (Hospitalization, Other)
  Sender: FDA-Public Use
  Company Number: PHEH2018US030366

PATIENT
  Sex: Female

DRUGS (1)
  1. GILENYA [Suspect]
     Active Substance: FINGOLIMOD HYDROCHLORIDE
     Indication: MULTIPLE SCLEROSIS
     Dosage: 0.5 MG, QD
     Route: 048
     Dates: start: 20180824

REACTIONS (5)
  - Central nervous system lesion [Recovering/Resolving]
  - Movement disorder [Recovering/Resolving]
  - Immunodeficiency [Unknown]
  - Gait inability [Unknown]
  - Dysphonia [Unknown]
